FAERS Safety Report 8381839-7 (Version None)
Quarter: 2012Q2

REPORT INFORMATION
  Report Type: 
  Country: None (occurrence: None)
  Receive Date: 20120523
  Receipt Date: 20120523
  Transmission Date: 20120825
  Serious: Yes (Hospitalization, Other)
  Sender: FDA-Public Use
  Company Number: None

PATIENT
  Age: 64 Year
  Sex: Female

DRUGS (6)
  1. RIFAMPICIN [Concomitant]
  2. PREDNOSINE [Concomitant]
  3. METHOTREXATE [Concomitant]
  4. PRAZINAMIDE [Concomitant]
  5. ETHAMBUTOL HYDROCHLORIDE [Suspect]
     Dosage: 400 MG TID
  6. INH [Concomitant]

REACTIONS (7)
  - NEOPLASM [None]
  - VISION BLURRED [None]
  - BLINDNESS [None]
  - CATARACT [None]
  - HEPATITIS [None]
  - TOXIC OPTIC NEUROPATHY [None]
  - VISUAL FIELD DEFECT [None]
